FAERS Safety Report 6662243-6 (Version None)
Quarter: 2010Q1

REPORT INFORMATION
  Report Type: 
  Country: None (occurrence: None)
  Receive Date: 20100331
  Receipt Date: 20100318
  Transmission Date: 20100710
  Serious: Yes (Hospitalization, Other)
  Sender: FDA-Public Use
  Company Number: GB-MYLANLABS-2010S1004658

PATIENT
  Age: 63 Year
  Sex: Male

DRUGS (11)
  1. ATENOLOL [Suspect]
     Indication: HYPERTENSION
  2. NALOXONE HCL W/OXYCODONE HCL [Suspect]
     Indication: PAIN
     Route: 048
     Dates: start: 20090827, end: 20090923
  3. CILAZAPRIL [Concomitant]
     Indication: DRUG USE FOR UNKNOWN INDICATION
  4. FENTANYL CITRATE [Concomitant]
     Indication: DRUG USE FOR UNKNOWN INDICATION
  5. FLUANXOL /00109702/ [Concomitant]
     Indication: DRUG USE FOR UNKNOWN INDICATION
  6. FUROSEMIDE [Concomitant]
     Indication: DRUG USE FOR UNKNOWN INDICATION
  7. LEVOTHYROXINE SODIUM [Concomitant]
     Indication: DRUG USE FOR UNKNOWN INDICATION
  8. MACROGOL [Concomitant]
     Indication: DRUG USE FOR UNKNOWN INDICATION
  9. MEPERIDINE HCL [Concomitant]
     Indication: DRUG USE FOR UNKNOWN INDICATION
  10. PREGABALIN [Concomitant]
     Indication: DRUG USE FOR UNKNOWN INDICATION
  11. SIMVASTATIN [Concomitant]
     Indication: DRUG USE FOR UNKNOWN INDICATION

REACTIONS (1)
  - AGGRESSION [None]
